FAERS Safety Report 15487565 (Version 1)
Quarter: 2018Q4

REPORT INFORMATION
  Report Type: Spontaneous
  Country: FR (occurrence: FR)
  Receive Date: 20181011
  Receipt Date: 20181011
  Transmission Date: 20190205
  Serious: Yes (Death)
  Sender: FDA-Public Use
  Company Number: FR-JNJFOC-20181012544

PATIENT
  Age: 60 Year
  Sex: Female
  Weight: 98 kg

DRUGS (7)
  1. DOXORUBICIN HYDROCHLORIDE. [Suspect]
     Active Substance: DOXORUBICIN HYDROCHLORIDE
     Indication: SARCOMA
     Route: 042
     Dates: start: 20180806, end: 20180807
  2. CHLORURE DE SODIUM [Concomitant]
     Active Substance: SODIUM CHLORIDE
     Route: 065
  3. HOLOXAN [Interacting]
     Active Substance: IFOSFAMIDE
     Indication: SARCOMA
     Route: 042
     Dates: start: 20180806, end: 20180807
  4. ONDANSETRON [Concomitant]
     Active Substance: ONDANSETRON
     Route: 065
  5. EMEND [Interacting]
     Active Substance: APREPITANT
     Indication: PRODUCT USED FOR UNKNOWN INDICATION
     Route: 048
     Dates: start: 20180806, end: 20180807
  6. MESNA EG [Concomitant]
     Active Substance: MESNA
     Route: 065
  7. METHYLPREDNISOLONE. [Concomitant]
     Active Substance: METHYLPREDNISOLONE
     Route: 065

REACTIONS (4)
  - Encephalopathy [Fatal]
  - Off label use [Unknown]
  - Drug interaction [Fatal]
  - Product use in unapproved indication [Unknown]

NARRATIVE: CASE EVENT DATE: 20180807
